FAERS Safety Report 5138803-0 (Version None)
Quarter: 2006Q4

REPORT INFORMATION
  Report Type: 
  Country: None (occurrence: None)
  Receive Date: 20061030
  Receipt Date: 20061023
  Transmission Date: 20070319
  Serious: Yes (Death)
  Sender: FDA-Public Use
  Company Number: 2006AC01941

PATIENT
  Age: 62 Year
  Sex: Male

DRUGS (2)
  1. TAMOXIFEN CITRATE [Suspect]
     Indication: VASCULAR PROCEDURE COMPLICATION
     Dates: start: 20040701
  2. PREDNISOLONE [Concomitant]
     Indication: VASCULAR PROCEDURE COMPLICATION
     Dates: start: 20040701

REACTIONS (2)
  - CALCIPHYLAXIS [None]
  - GANGRENE [None]
